FAERS Safety Report 5564391-0 (Version None)
Quarter: 2007Q4

REPORT INFORMATION
  Report Type: 
  Country: None (occurrence: None)
  Receive Date: 20071218
  Receipt Date: 20071211
  Transmission Date: 20080405
  Serious: Yes (Hospitalization)
  Sender: FDA-Public Use
  Company Number: US-BRISTOL-MYERS SQUIBB COMPANY-14011191

PATIENT
  Age: 55 Year
  Sex: Male
  Weight: 90 kg

DRUGS (6)
  1. CETUXIMAB [Suspect]
     Indication: SQUAMOUS CELL CARCINOMA
     Dates: start: 20071126
  2. CISPLATIN [Suspect]
     Indication: SQUAMOUS CELL CARCINOMA
     Dosage: COURSE START DATE-08OCT07
     Dates: start: 20071029
  3. RADIATION THERAPY [Suspect]
     Indication: SQUAMOUS CELL CARCINOMA
     Dosage: 1 DOSAGEFORM = 66GY; FRACTIONS-33;ELAPSED DAYS-50
     Dates: start: 20071127
  4. FENTANYL TRANSDERMAL SYSTEM [Suspect]
  5. LORAZEPAM [Suspect]
  6. PERCOCET [Suspect]

REACTIONS (7)
  - ALANINE AMINOTRANSFERASE INCREASED [None]
  - ALTERED STATE OF CONSCIOUSNESS [None]
  - ASPARTATE AMINOTRANSFERASE INCREASED [None]
  - BLOOD CREATININE INCREASED [None]
  - DYSPNOEA [None]
  - HYPOTENSION [None]
  - RENAL FAILURE [None]
